FAERS Safety Report 5212994-5 (Version None)
Quarter: 2007Q1

REPORT INFORMATION
  Report Type: 
  Country: None (occurrence: None)
  Receive Date: 20070117
  Receipt Date: 20070104
  Transmission Date: 20070707
  Serious: No
  Sender: FDA-Public Use
  Company Number: ORACEA-2007-0002

PATIENT
  Sex: Female

DRUGS (1)
  1. ORACEA [Suspect]
     Dates: end: 20070101

REACTIONS (1)
  - PAIN [None]
